FAERS Safety Report 6531344-5 (Version None)
Quarter: 2010Q1

REPORT INFORMATION
  Report Type: 
  Country: None (occurrence: None)
  Receive Date: 20100108
  Receipt Date: 20090924
  Transmission Date: 20100710
  Serious: No
  Sender: FDA-Public Use
  Company Number: A0808864A

PATIENT
  Age: 61 Year
  Sex: Female

DRUGS (10)
  1. TYKERB [Suspect]
     Indication: BREAST CANCER
     Dosage: 1250MG PER DAY
     Route: 048
     Dates: start: 20090917, end: 20090921
  2. GEMZAR [Concomitant]
  3. ANTI-NAUSEA DRUGS [Concomitant]
  4. THYROID TAB [Concomitant]
  5. PAROXETINE [Concomitant]
  6. ATENOLOL [Concomitant]
  7. AVALIDE [Concomitant]
  8. TRIAZOLAM [Concomitant]
  9. PREDNISONE [Concomitant]
  10. MULTI-VITAMIN [Concomitant]

REACTIONS (5)
  - CHEILITIS [None]
  - FATIGUE [None]
  - INSOMNIA [None]
  - SOMNOLENCE [None]
  - TONGUE ERUPTION [None]
